FAERS Safety Report 15047949 (Version 1)
Quarter: 2018Q2

REPORT INFORMATION
  Report Type: Spontaneous
  Country: JP (occurrence: JP)
  Receive Date: 20180622
  Receipt Date: 20180622
  Transmission Date: 20180711
  Serious: Yes (Life-Threatening)
  Sender: FDA-Public Use
  Company Number: JP-ABBVIE-18K-087-2396128-00

PATIENT
  Age: 80 Year
  Sex: Male

DRUGS (1)
  1. MAVIRET [Suspect]
     Active Substance: GLECAPREVIR\PIBRENTASVIR
     Indication: HEPATIC CIRRHOSIS
     Route: 048
     Dates: start: 2018, end: 20180527

REACTIONS (2)
  - Jaundice [Not Recovered/Not Resolved]
  - Bile duct stone [Not Recovered/Not Resolved]

NARRATIVE: CASE EVENT DATE: 20180527
